FAERS Safety Report 7321130-0 (Version None)
Quarter: 2011Q1

REPORT INFORMATION
  Report Type: 
  Country: None (occurrence: None)
  Receive Date: 20110228
  Receipt Date: 20110221
  Transmission Date: 20110831
  Serious: Yes (Hospitalization)
  Sender: FDA-Public Use
  Company Number: CN-JNJFOC-20110206908

PATIENT
  Age: 70 Year
  Sex: Female

DRUGS (1)
  1. TRAMADOL HYDROCHLORIDE AND ACETAMINOPHEN [Suspect]
     Indication: EXOSTOSIS
     Dosage: ONCE A DAY
     Route: 048

REACTIONS (3)
  - TREATMENT NONCOMPLIANCE [None]
  - VOMITING [None]
  - SOMNOLENCE [None]
